FAERS Safety Report 9928025 (Version 2)
Quarter: 2014Q1

REPORT INFORMATION
  Report Type: Spontaneous
  Country: US (occurrence: US)
  Receive Date: 20140227
  Receipt Date: 20140328
  Transmission Date: 20141002
  Serious: Yes (Death)
  Sender: FDA-Public Use
  Company Number: US-TEVA-464494USA

PATIENT
  Sex: Female

DRUGS (2)
  1. FENTORA [Suspect]
     Indication: BREAKTHROUGH PAIN
     Route: 002
     Dates: start: 201102, end: 20120716
  2. PERCOCET [Suspect]
     Indication: BREAKTHROUGH PAIN
     Dates: start: 20120717

REACTIONS (1)
  - Lung cancer metastatic [Fatal]
